FAERS Safety Report 8205200-0 (Version None)
Quarter: 2012Q1

REPORT INFORMATION
  Report Type: 
  Country: None (occurrence: None)
  Receive Date: 20120313
  Receipt Date: 20120228
  Transmission Date: 20120608
  Serious: Yes (Other)
  Sender: FDA-Public Use
  Company Number: JP-ROCHE-1039380

PATIENT
  Sex: Male
  Weight: 20 kg

DRUGS (5)
  1. MEPTIN [Concomitant]
     Indication: COUGH
     Route: 048
     Dates: start: 20120201
  2. TAMIFLU [Suspect]
     Indication: INFLUENZA
     Route: 048
     Dates: start: 20120201, end: 20120202
  3. MUCODYNE [Concomitant]
     Indication: COUGH
     Route: 048
     Dates: start: 20120201
  4. ASVERIN [Concomitant]
     Indication: COUGH
     Route: 048
     Dates: start: 20120201
  5. ACETAMINOPHEN [Concomitant]
     Indication: PYREXIA
     Dosage: TAKEN AS NEEDED
     Route: 048
     Dates: start: 20120201

REACTIONS (1)
  - ABNORMAL BEHAVIOUR [None]
